FAERS Safety Report 4647259-3 (Version None)
Quarter: 2005Q2

REPORT INFORMATION
  Report Type: 
  Country: None (occurrence: None)
  Receive Date: 20050428
  Receipt Date: 20050301
  Transmission Date: 20051028
  Serious: Yes (Other)
  Sender: FDA-Public Use
  Company Number: 200511727US

PATIENT
  Age: 61 Year
  Sex: Female

DRUGS (2)
  1. KETEK [Suspect]
     Indication: ASTHMA
     Dosage: DOSE: TWO 400MG TABLETS
     Route: 048
     Dates: start: 20050101, end: 20050105
  2. VITAMIN B-12 [Concomitant]
     Dosage: DOSE: UNKNOWN

REACTIONS (1)
  - ALOPECIA [None]
